FAERS Safety Report 23877719 (Version 1)
Quarter: 2024Q2

REPORT INFORMATION
  Report Type: Report from Study
  Country: BR (occurrence: BR)
  Receive Date: 20240521
  Receipt Date: 20240521
  Transmission Date: 20240716
  Serious: Yes (Other)
  Sender: FDA-Public Use
  Company Number: BR-CELLTRION INC.-2024BR011504

PATIENT

DRUGS (9)
  1. INFLIXIMAB [Suspect]
     Active Substance: INFLIXIMAB
     Indication: Crohn^s disease
     Dosage: 3 AMPOULES EVERY 8 WEEKS
     Route: 042
     Dates: start: 20231016
  2. INFLIXIMAB [Suspect]
     Active Substance: INFLIXIMAB
     Dosage: 3 AMPOULES EVERY 8 WEEKS (JANUARY)
     Route: 042
  3. INFLIXIMAB [Suspect]
     Active Substance: INFLIXIMAB
     Dosage: 3 AMPOULES EVERY 8 WEEKS (MARCH)
     Route: 042
  4. INFLIXIMAB [Suspect]
     Active Substance: INFLIXIMAB
     Dosage: 3 AMPOULES EVERY 8 WEEKS (MAY)
     Route: 042
  5. INFLIXIMAB [Suspect]
     Active Substance: INFLIXIMAB
     Dosage: 3 ATTACK DOSES, WITH A 15-DAY INTERVAL AND ONE AMPOULE PER APPLICATION
  6. INFLIXIMAB [Suspect]
     Active Substance: INFLIXIMAB
     Dosage: 3 ATTACK DOSES, WITH A 15-DAY INTERVAL AND ONE AMPOULE PER APPLICATION
  7. INFLIXIMAB [Suspect]
     Active Substance: INFLIXIMAB
     Dosage: 3 ATTACK DOSES, WITH A 15-DAY INTERVAL AND ONE AMPOULE PER APPLICATION
  8. MESALAMINE [Concomitant]
     Active Substance: MESALAMINE
     Indication: Crohn^s disease
     Dosage: 6 PILLS A DAY (START DATE: 1 YEAR AND A HALF; STOP DATE: 6 MONTHS AGO)
     Route: 048
  9. BENZALKONIUM CHLORIDE;SODIUM CHLORIDE [Concomitant]
     Indication: Dust allergy
     Dosage: 6 TIMES A DAY (START DATE: 1 YEAR)
     Route: 048

REACTIONS (7)
  - Crohn^s disease [Not Recovered/Not Resolved]
  - Drug hypersensitivity [Unknown]
  - Documented hypersensitivity to administered product [Unknown]
  - Drug resistance [Unknown]
  - Therapy interrupted [Unknown]
  - Product supply issue [Unknown]
  - Intentional product use issue [Unknown]
